FAERS Safety Report 5504117-X (Version None)
Quarter: 2007Q4

REPORT INFORMATION
  Report Type: 
  Country: None (occurrence: None)
  Receive Date: 20071101
  Receipt Date: 20071031
  Transmission Date: 20080405
  Serious: Yes (Hospitalization)
  Sender: FDA-Public Use
  Company Number: FR-JNJFOC-20071002532

PATIENT
  Age: 31 Year
  Sex: Male
  Weight: 110 kg

DRUGS (2)
  1. RISPERDAL CONSTA [Suspect]
     Indication: SCHIZOPHRENIA
     Route: 030
  2. DEPAKOTE [Concomitant]
     Indication: HYSTERICAL PSYCHOSIS
     Route: 048

REACTIONS (2)
  - FURUNCLE [None]
  - SUBCUTANEOUS ABSCESS [None]
